FAERS Safety Report 7817182-1 (Version None)
Quarter: 2011Q4

REPORT INFORMATION
  Report Type: 
  Country: None (occurrence: None)
  Receive Date: 20111017
  Receipt Date: 20111017
  Transmission Date: 20120403
  Serious: Yes (Other)
  Sender: FDA-Public Use
  Company Number: None

PATIENT
  Age: 7 Year
  Sex: Female
  Weight: 19.05 kg

DRUGS (1)
  1. SINGULAIR [Suspect]
     Indication: ASTHMA
     Dosage: CHEW TABS
     Route: 048
     Dates: start: 20030801, end: 20080201

REACTIONS (5)
  - ABNORMAL DREAMS [None]
  - CONVULSION [None]
  - EDUCATIONAL PROBLEM [None]
  - SELF INJURIOUS BEHAVIOUR [None]
  - MEMORY IMPAIRMENT [None]
